FAERS Safety Report 8577479 (Version 7)
Quarter: 2013Q2

REPORT INFORMATION
  Report Type: Spontaneous
  Country: US (occurrence: US)
  Receive Date: 20120524
  Receipt Date: 20130510
  Transmission Date: 20140414
  Serious: Yes (Death, Hospitalization)
  Sender: FDA-Public Use
  Company Number: US-US-EMD SERONO, INC.-7133657

PATIENT
  Age: 53 Year
  Sex: Male

DRUGS (7)
  1. REBIF [Suspect]
     Indication: MULTIPLE SCLEROSIS
     Route: 058
     Dates: start: 20110512, end: 201206
  2. REBIF [Suspect]
     Route: 058
  3. DIOVAN [Concomitant]
     Indication: HYPERTENSION
  4. NORVASC [Concomitant]
     Indication: HYPERTENSION
  5. SIMVASTATIN [Concomitant]
     Indication: BLOOD CHOLESTEROL INCREASED
  6. ZOLOFT [Concomitant]
     Indication: PRODUCT USED FOR UNKNOWN INDICATION
  7. ZYPREXA [Concomitant]
     Indication: PRODUCT USED FOR UNKNOWN INDICATION

REACTIONS (14)
  - Melanoma recurrent [Fatal]
  - Metastases to central nervous system [Fatal]
  - Metastases to spleen [Fatal]
  - Metastases to spine [Fatal]
  - Metastases to liver [Fatal]
  - Metastases to lung [Fatal]
  - Metastases to bladder [Fatal]
  - Brain neoplasm [Fatal]
  - Cerebrovascular accident [Unknown]
  - Convulsion [Unknown]
  - Formication [Unknown]
  - Insomnia [Unknown]
  - Feeling abnormal [Unknown]
  - Influenza like illness [Recovered/Resolved]
